FAERS Safety Report 5379851-5 (Version None)
Quarter: 2007Q3

REPORT INFORMATION
  Report Type: 
  Country: None (occurrence: None)
  Receive Date: 20070703
  Receipt Date: 20070621
  Transmission Date: 20080115
  Serious: Yes (Hospitalization)
  Sender: FDA-Public Use
  Company Number: 2007EU001358

PATIENT
  Age: 53 Year
  Sex: Male

DRUGS (6)
  1. PROGRAF [Suspect]
     Dosage: 3 MG, BID, ORAL
     Route: 048
  2. CELLCEPT [Suspect]
     Indication: RENAL TRANSPLANT
     Dosage: 1 DF, BID, ORAL
     Route: 048
  3. HYPERIUM (RILMENIDINE) [Concomitant]
  4. SODIUM [Concomitant]
  5. AMLOR (AMLODOPINE BESILATE) [Concomitant]
  6. COTAREG (VALSARTAN) [Concomitant]

REACTIONS (2)
  - ENDOCARDITIS [None]
  - TOOTH ABSCESS [None]
